FAERS Safety Report 13835393 (Version 1)
Quarter: 2017Q3

REPORT INFORMATION
  Report Type: Spontaneous
  Country: JP (occurrence: JP)
  Receive Date: 20170804
  Receipt Date: 20170804
  Transmission Date: 20171127
  Serious: Yes (Death, Other)
  Sender: FDA-Public Use
  Company Number: JP-JNJFOC-20170802032

PATIENT
  Age: 47 Year
  Sex: Female

DRUGS (2)
  1. DOXIL [Suspect]
     Active Substance: DOXORUBICIN HYDROCHLORIDE
     Indication: SEROUS CYSTADENOCARCINOMA OVARY
     Route: 042
  2. NEDAPLATIN [Suspect]
     Active Substance: NEDAPLATIN
     Indication: SEROUS CYSTADENOCARCINOMA OVARY
     Route: 065

REACTIONS (1)
  - Myelodysplastic syndrome [Fatal]
